FAERS Safety Report 25228613 (Version 3)
Quarter: 2025Q4

REPORT INFORMATION
  Report Type: Spontaneous
  Country: EU (occurrence: EU)
  Receive Date: 20250423
  Receipt Date: 20251030
  Transmission Date: 20260118
  Serious: Yes (Other)
  Sender: CELLTRION
  Company Number: EU-ABBVIE-5969326

PATIENT

DRUGS (3)
  1. INFLIXIMAB [Suspect]
     Active Substance: INFLIXIMAB
     Indication: Product used for unknown indication
     Dosage: UNK
     Route: 065
  2. HUMIRA [Suspect]
     Active Substance: ADALIMUMAB
     Indication: Psoriasis
     Dosage: UNK
     Route: 058
     Dates: start: 2010, end: 2012
  3. ETANERCEPT [Concomitant]
     Active Substance: ETANERCEPT
     Indication: Product used for unknown indication
     Dosage: UNK
     Dates: start: 2014, end: 2023

REACTIONS (5)
  - Psoriatic arthropathy [Unknown]
  - Skin disorder [Unknown]
  - Arthralgia [Unknown]
  - Psoriasis [Unknown]
  - Drug ineffective [Unknown]

NARRATIVE: CASE EVENT DATE: 20120101
